FAERS Safety Report 5178066-3 (Version None)
Quarter: 2006Q4

REPORT INFORMATION
  Report Type: 
  Country: None (occurrence: None)
  Receive Date: 20061218
  Receipt Date: 20060730
  Transmission Date: 20070319
  Serious: No
  Sender: FDA-Public Use
  Company Number: US-AMGEN-KDL188354

PATIENT
  Sex: Female

DRUGS (2)
  1. ENBREL [Suspect]
     Indication: RHEUMATOID ARTHRITIS
     Route: 058
     Dates: start: 20060601
  2. IMURAN [Concomitant]
     Dates: start: 20040101

REACTIONS (3)
  - RASH PRURITIC [None]
  - THERAPEUTIC RESPONSE DELAYED [None]
  - URTICARIA [None]
